FAERS Safety Report 4507837-9 (Version None)
Quarter: 2004Q4

REPORT INFORMATION
  Report Type: 
  Country: None (occurrence: None)
  Receive Date: 20041118
  Receipt Date: 20041105
  Transmission Date: 20050328
  Serious: Yes (Hospitalization)
  Sender: FDA-Public Use
  Company Number: 2004AP04434

PATIENT
  Age: 59 Year
  Sex: Female
  Weight: 60 kg

DRUGS (12)
  1. DIPRIVAN [Suspect]
     Indication: SEDATION
     Dosage: TOTAL DOSE 1700 MG
     Dates: start: 20040813, end: 20040819
  2. FIRSTCIN [Concomitant]
  3. PREDONINE [Concomitant]
  4. INOVAN [Concomitant]
  5. FREEZE DRIED POLYETHYLENE GLYCOL [Concomitant]
  6. ALBUMIN (HUMAN) [Concomitant]
  7. FAMOTIDINE [Concomitant]
  8. FUNGUARD [Concomitant]
  9. MEROPENEM [Concomitant]
  10. NEUTROGIN [Concomitant]
  11. NORADRENALIN [Concomitant]
  12. PAZUCROSS [Concomitant]

REACTIONS (10)
  - BRAIN ABSCESS [None]
  - BRAIN NEOPLASM [None]
  - CEREBRAL INFARCTION [None]
  - CONFUSIONAL STATE [None]
  - DELAYED RECOVERY FROM ANAESTHESIA [None]
  - DRUG INEFFECTIVE [None]
  - HAEMODIALYSIS [None]
  - HEPATIC FUNCTION ABNORMAL [None]
  - NUCLEAR MAGNETIC RESONANCE IMAGING BRAIN ABNORMAL [None]
  - RENAL FAILURE ACUTE [None]
